FAERS Safety Report 8922612 (Version 1)
Quarter: 2012Q4

REPORT INFORMATION
  Report Type: 
  Country: FR (occurrence: FR)
  Receive Date: 20121125
  Receipt Date: 20121125
  Transmission Date: 20130627
  Serious: Yes (Life-Threatening, Hospitalization, Other)
  Sender: FDA-Public Use
  Company Number: FR-BRISTOL-MYERS SQUIBB COMPANY-17131483

PATIENT
  Age: 78 Year
  Sex: Male

DRUGS (8)
  1. HYDREA CAPS 500 MG [Suspect]
     Indication: THROMBOCYTOSIS
     Route: 048
     Dates: start: 201203
  2. DIAMICRON [Concomitant]
     Indication: TYPE 2 DIABETES MELLITUS
     Route: 048
  3. EZETROL [Concomitant]
     Indication: DYSLIPIDAEMIA
     Route: 048
  4. MEDIATENSYL [Concomitant]
     Indication: HYPERTENSION
     Route: 048
  5. KARDEGIC [Concomitant]
     Indication: CARDIOVASCULAR EVENT PROPHYLAXIS
     Route: 048
  6. FOZIRETIC [Concomitant]
     Indication: HYPERTENSION
     Dosage: Formulation-Foziretic 20mg/1.5mg
     Route: 048
  7. MONO-TILDIEM LP [Concomitant]
     Indication: HYPERTENSION
     Route: 048
  8. DEBRIDAT [Concomitant]
     Dates: end: 20120526

REACTIONS (3)
  - Acute pulmonary oedema [Recovering/Resolving]
  - Interstitial lung disease [Recovered/Resolved]
  - Haemoglobin decreased [Unknown]
